FAERS Safety Report 12248116 (Version 3)
Quarter: 2016Q3

REPORT INFORMATION
  Report Type: Spontaneous
  Country: CN (occurrence: CN)
  Receive Date: 20160408
  Receipt Date: 20160719
  Transmission Date: 20161109
  Serious: Yes (Hospitalization)
  Sender: FDA-Public Use
  Company Number: CN-PFIZER INC-2015433851

PATIENT
  Age: 60 Year
  Sex: Female

DRUGS (1)
  1. SUTENT [Suspect]
     Active Substance: SUNITINIB MALATE
     Indication: RENAL CELL CARCINOMA
     Dosage: UNK

REACTIONS (7)
  - Hydrothorax [Unknown]
  - Gait disturbance [Unknown]
  - Disease progression [Unknown]
  - Decreased appetite [Unknown]
  - Renal cell carcinoma [Unknown]
  - Lung infection [Unknown]
  - General physical health deterioration [Unknown]
